FAERS Safety Report 4590804-7 (Version None)
Quarter: 2005Q1

REPORT INFORMATION
  Report Type: 
  Country: None (occurrence: None)
  Receive Date: 20050225
  Receipt Date: 20030918
  Transmission Date: 20050727
  Serious: Yes (Death, Life-Threatening, Hospitalization)
  Sender: FDA-Public Use
  Company Number: 200313489FR

PATIENT
  Age: 52 Year
  Sex: Female
  Weight: 83 kg

DRUGS (13)
  1. TAXOTERE [Suspect]
     Indication: BREAST CANCER
     Route: 042
     Dates: start: 20030605, end: 20030605
  2. CAPECITABINE [Suspect]
     Indication: BREAST CANCER
     Route: 048
     Dates: start: 20030605, end: 20030614
  3. DAFLON [Concomitant]
     Indication: VENOUS INSUFFICIENCY
  4. ENDOTELON [Concomitant]
     Indication: VENOUS INSUFFICIENCY
  5. CLARADOL [Concomitant]
     Indication: HEADACHE
  6. BECILAN [Concomitant]
  7. XANAX [Concomitant]
     Indication: ANXIETY
  8. FUNGIZONE [Concomitant]
     Indication: STOMATITIS
     Dates: start: 20030616
  9. ZOVIRAX [Concomitant]
     Indication: STOMATITIS
     Dates: start: 20030616
  10. XYLOCAINE [Concomitant]
     Indication: STOMATITIS
     Dates: start: 20030616
  11. OROPIVALONE [Concomitant]
     Indication: STOMATITIS
  12. HEXASPRAY [Concomitant]
     Indication: STOMATITIS
  13. LANZOR [Concomitant]
     Indication: STOMATITIS

REACTIONS (19)
  - CARDIO-RESPIRATORY ARREST [None]
  - DIARRHOEA [None]
  - HAEMATEMESIS [None]
  - HAEMOGLOBIN DECREASED [None]
  - HERPES SIMPLEX [None]
  - HYPOTENSION [None]
  - HYPOVOLAEMIC SHOCK [None]
  - LUNG DISORDER [None]
  - MALAISE [None]
  - NAUSEA [None]
  - NEUTROPHIL COUNT DECREASED [None]
  - ORAL INTAKE REDUCED [None]
  - STOMATITIS [None]
  - TACHYCARDIA [None]
  - TACHYPNOEA [None]
  - THROMBOCYTOPENIA [None]
  - VOMITING [None]
  - WEIGHT DECREASED [None]
  - WHITE BLOOD CELL COUNT DECREASED [None]
